FAERS Safety Report 19149758 (Version 2)
Quarter: 2021Q2

REPORT INFORMATION
  Report Type: Spontaneous
  Country: CA (occurrence: CA)
  Receive Date: 20210416
  Receipt Date: 20210526
  Transmission Date: 20210717
  Serious: Yes (Death)
  Sender: FDA-Public Use
  Company Number: CA-CELLTRION INC.-2021CA005217

PATIENT

DRUGS (17)
  1. INFLECTRA [Suspect]
     Active Substance: INFLIXIMAB-DYYB
     Dosage: 5 MG/KG, (ROUNDED TO THE NEAREST VIAL) AT 0, 2, 6 WEEKS, THEN EVERY 8 WEEKS
     Route: 064
     Dates: start: 20200601
  2. VITAMIN D NOS [Concomitant]
     Active Substance: VITAMIN D NOS
     Dosage: UNK, WEEKLY
     Route: 064
  3. INFLECTRA [Suspect]
     Active Substance: INFLIXIMAB-DYYB
     Indication: CROHN^S DISEASE
     Dosage: 5 MG/KG, (ROUNDED TO THE NEAREST VIAL) AT 0, 2, 6 WEEKS, THEN EVERY 8 WEEKS
     Route: 064
     Dates: start: 20200413
  4. PREDNISONE. [Concomitant]
     Active Substance: PREDNISONE
     Dosage: UNK
     Route: 063
  5. ESCITALOPRAM [Concomitant]
     Active Substance: ESCITALOPRAM OXALATE
     Dosage: UNK
     Route: 063
  6. INFLECTRA [Suspect]
     Active Substance: INFLIXIMAB-DYYB
     Dosage: 5 MG/KG, (ROUNDED TO THE NEAREST VIAL) AT 0, 2, 6 WEEKS, THEN EVERY 8 WEEKS
     Route: 064
     Dates: start: 20201116
  7. INFLECTRA [Suspect]
     Active Substance: INFLIXIMAB-DYYB
     Dosage: 5 MG/KG, (ROUNDED TO THE NEAREST VIAL) AT 0, 2, 6 WEEKS, THEN EVERY 8 WEEKS
     Route: 064
     Dates: start: 20200727
  8. INFLECTRA [Suspect]
     Active Substance: INFLIXIMAB-DYYB
     Dosage: 5 MG/KG, (ROUNDED TO THE NEAREST VIAL) AT 0, 2, 6 WEEKS, THEN EVERY 8 WEEKS
     Route: 063
     Dates: start: 20210223
  9. ESCITALOPRAM [Concomitant]
     Active Substance: ESCITALOPRAM OXALATE
     Dosage: UNK
     Route: 063
  10. ESCITALOPRAM [Concomitant]
     Active Substance: ESCITALOPRAM OXALATE
     Dosage: UNK
     Route: 064
  11. INFLECTRA [Suspect]
     Active Substance: INFLIXIMAB-DYYB
     Dosage: 5 MG/KG, (ROUNDED TO THE NEAREST VIAL) AT 0, 2, 6 WEEKS, THEN EVERY 8 WEEKS
     Route: 063
     Dates: start: 20210112
  12. PREDNISONE. [Concomitant]
     Active Substance: PREDNISONE
     Dosage: UNK
     Route: 064
  13. INFLECTRA [Suspect]
     Active Substance: INFLIXIMAB-DYYB
     Dosage: 5 MG/KG, (ROUNDED TO THE NEAREST VIAL) AT 0, 2, 6 WEEKS, THEN EVERY 8 WEEKS
     Route: 064
     Dates: start: 20200923
  14. MEZAVANT [Concomitant]
     Active Substance: MESALAMINE
     Dosage: 1.2 G, (2 TABLETS) 2X/DAY
     Route: 064
  15. MEZAVANT [Concomitant]
     Active Substance: MESALAMINE
     Dosage: 1.2 G, (2 TABLETS) 2X/DAY
     Route: 063
  16. VITAMIN D NOS [Concomitant]
     Active Substance: VITAMIN D NOS
     Dosage: UNK, WEEKLY
     Route: 063
  17. ESCITALOPRAM [Concomitant]
     Active Substance: ESCITALOPRAM OXALATE
     Dosage: UNK
     Route: 064

REACTIONS (3)
  - Death [Fatal]
  - Foetal exposure during pregnancy [Fatal]
  - Exposure via breast milk [Fatal]
